FAERS Safety Report 5257438-2 (Version None)
Quarter: 2007Q1

REPORT INFORMATION
  Report Type: 
  Country: None (occurrence: None)
  Receive Date: 20070302
  Receipt Date: 20070205
  Transmission Date: 20070707
  Serious: Yes (Life-Threatening, Hospitalization)
  Sender: FDA-Public Use
  Company Number: 6029902

PATIENT
  Age: 46 Year
  Sex: Male

DRUGS (3)
  1. METFORMIN (TABLET) (METFORMIN) [Suspect]
     Indication: DRUG USE FOR UNKNOWN INDICATION
     Dosage: 56 GM (56 GM, 1 D) ORAL
     Route: 048
  2. RAMIPRIL [Suspect]
     Dosage: 35 MG (35 MG, 1 D) ORAL
     Route: 048
  3. ETHANOL (ETHANOL) [Suspect]
     Indication: DRUG USE FOR UNKNOWN INDICATION

REACTIONS (19)
  - ABDOMINAL PAIN LOWER [None]
  - ALCOHOL USE [None]
  - APNOEA [None]
  - BLOOD GLUCOSE INCREASED [None]
  - CARDIAC ARREST [None]
  - COMPARTMENT SYNDROME [None]
  - DIARRHOEA [None]
  - HAEMODIALYSIS [None]
  - HYPOTENSION [None]
  - LACTIC ACIDOSIS [None]
  - LEG AMPUTATION [None]
  - MULTIPLE DRUG OVERDOSE INTENTIONAL [None]
  - PAIN IN EXTREMITY [None]
  - PARTIAL SEIZURES [None]
  - RENAL IMPAIRMENT [None]
  - RESPIRATORY RATE INCREASED [None]
  - RHABDOMYOLYSIS [None]
  - SENSORY LOSS [None]
  - VOMITING [None]
